FAERS Safety Report 5849311-3 (Version None)
Quarter: 2008Q3

REPORT INFORMATION
  Report Type: 
  Country: None (occurrence: None)
  Receive Date: 20080819
  Receipt Date: 20080812
  Transmission Date: 20090109
  Serious: Yes (Hospitalization)
  Sender: FDA-Public Use
  Company Number: NL-TEVA-174890ISR

PATIENT
  Sex: Female
  Weight: 58 kg

DRUGS (8)
  1. METHOTREXATE [Suspect]
     Indication: RHEUMATOID ARTHRITIS
     Dates: start: 20000901
  2. ETANERCEPT [Suspect]
     Indication: RHEUMATOID ARTHRITIS
     Dates: start: 20041201
  3. INFLIXIMAB [Suspect]
     Dates: start: 20011201, end: 20031001
  4. ADALIMUMAB [Suspect]
     Dates: start: 20031201, end: 20040401
  5. ARTHROTEC [Concomitant]
  6. HALOPERIDOL [Concomitant]
  7. METOCLOPRAMIDE [Concomitant]
  8. ACETAMINOPHEN [Concomitant]

REACTIONS (1)
  - LUNG NEOPLASM MALIGNANT [None]
